FAERS Safety Report 16976538 (Version 1)
Quarter: 2019Q4

REPORT INFORMATION
  Report Type: Report from Study
  Country: US (occurrence: US)
  Receive Date: 20191030
  Receipt Date: 20191030
  Transmission Date: 20200122
  Serious: Yes (Other)
  Sender: FDA-Public Use
  Company Number: US-JNJFOC-20190421505

PATIENT
  Age: 77 Year
  Sex: Female

DRUGS (14)
  1. IMBRUVICA [Suspect]
     Active Substance: IBRUTINIB
     Route: 048
  2. IMBRUVICA [Suspect]
     Active Substance: IBRUTINIB
     Route: 048
  3. CALTRATE [Concomitant]
     Active Substance: CALCIUM CARBONATE
  4. IBRUTINIB [Suspect]
     Active Substance: IBRUTINIB
     Indication: BREAST CANCER FEMALE
     Route: 048
  5. MELATONIN [Concomitant]
     Active Substance: MELATONIN
  6. PANTOPRAZOLE SODIUM. [Concomitant]
     Active Substance: PANTOPRAZOLE SODIUM
  7. IMBRUVICA [Suspect]
     Active Substance: IBRUTINIB
     Indication: CHRONIC LYMPHOCYTIC LEUKAEMIA
     Route: 048
     Dates: start: 20180425, end: 20180521
  8. SYNTHROID [Concomitant]
     Active Substance: LEVOTHYROXINE SODIUM
  9. IMBRUVICA [Suspect]
     Active Substance: IBRUTINIB
     Indication: BREAST CANCER FEMALE
     Route: 048
     Dates: start: 20180625, end: 2019
  10. IMBRUVICA [Suspect]
     Active Substance: IBRUTINIB
     Route: 048
     Dates: start: 2019
  11. IBRUTINIB [Suspect]
     Active Substance: IBRUTINIB
     Route: 048
  12. PANTOPRAZOLE [Concomitant]
     Active Substance: PANTOPRAZOLE
  13. METAMUCIL [Concomitant]
     Active Substance: PLANTAGO SEED
  14. GEMFIBROZIL. [Concomitant]
     Active Substance: GEMFIBROZIL

REACTIONS (5)
  - Heart valve incompetence [Unknown]
  - Skin cancer [Unknown]
  - Off label use [Unknown]
  - Micrographic skin surgery [Unknown]
  - Product use in unapproved indication [Unknown]

NARRATIVE: CASE EVENT DATE: 20190404
